FAERS Safety Report 6180238-6 (Version None)
Quarter: 2009Q2

REPORT INFORMATION
  Report Type: 
  Country: None (occurrence: None)
  Receive Date: 20090504
  Receipt Date: 20090421
  Transmission Date: 20091009
  Serious: Yes (Hospitalization)
  Sender: FDA-Public Use
  Company Number: 2009-01561

PATIENT
  Age: 85 Year
  Sex: Female
  Weight: 71.5 kg

DRUGS (3)
  1. VELCADE [Suspect]
     Indication: MULTIPLE MYELOMA
     Dosage: 2.5 MG, INTRAVENOUS
     Route: 042
     Dates: start: 20081118, end: 20090413
  2. ALKERAN [Suspect]
     Indication: MULTIPLE MYELOMA
     Dosage: 18 MG, ORAL
     Route: 048
     Dates: start: 20081118, end: 20090213
  3. PREDNISONE [Suspect]
     Indication: MULTIPLE MYELOMA
     Dosage: 120 MG, ORAL
     Route: 048
     Dates: start: 20081118, end: 20090213

REACTIONS (12)
  - BLOOD CREATININE INCREASED [None]
  - BLOOD PRESSURE SYSTOLIC INCREASED [None]
  - BODY TEMPERATURE DECREASED [None]
  - CONFUSIONAL STATE [None]
  - DECREASED APPETITE [None]
  - DEHYDRATION [None]
  - DIARRHOEA [None]
  - DYSPNOEA EXERTIONAL [None]
  - MALNUTRITION [None]
  - PERFORMANCE STATUS DECREASED [None]
  - RESPIRATORY RATE INCREASED [None]
  - WALKING AID USER [None]
